FAERS Safety Report 6162709-1 (Version None)
Quarter: 2009Q2

REPORT INFORMATION
  Report Type: 
  Country: None (occurrence: None)
  Receive Date: 20090421
  Receipt Date: 20080213
  Transmission Date: 20091009
  Serious: No
  Sender: FDA-Public Use
  Company Number: US-ASTRAZENECA-2008UW02982

PATIENT
  Age: 53 Year
  Sex: Female

DRUGS (1)
  1. TOPROL-XL [Suspect]
     Indication: HYPERTENSION
     Route: 048
     Dates: start: 20070101

REACTIONS (4)
  - ABNORMAL DREAMS [None]
  - ARTHRALGIA [None]
  - BLOOD GLUCOSE INCREASED [None]
  - WHEEZING [None]
